FAERS Safety Report 6711160-1 (Version None)
Quarter: 2010Q2

REPORT INFORMATION
  Report Type: 
  Country: None (occurrence: None)
  Receive Date: 20100504
  Receipt Date: 20100504
  Transmission Date: 20101027
  Serious: Yes (Other)
  Sender: FDA-Public Use
  Company Number: None

PATIENT
  Age: 20 Month
  Sex: Male
  Weight: 12.7007 kg

DRUGS (2)
  1. CHILDREN'S MOTRIN [Suspect]
     Indication: TEETHING
     Dosage: 5ML EVERY 6 HOURS AS N PO
     Route: 048
     Dates: start: 20100405, end: 20100503
  2. TYLENOL CHILDREN'S SUSPENSION MCNEIL [Suspect]
     Indication: TEETHING
     Dosage: 5ML EVERY 4 HOURS AS N PO
     Route: 048
     Dates: start: 20100405, end: 20100503

REACTIONS (7)
  - EYE SWELLING [None]
  - HYPERSENSITIVITY [None]
  - IRRITABILITY [None]
  - OEDEMA PERIPHERAL [None]
  - RASH ERYTHEMATOUS [None]
  - RASH PRURITIC [None]
  - SWELLING FACE [None]
